FAERS Safety Report 5308929-7 (Version None)
Quarter: 2007Q2

REPORT INFORMATION
  Report Type: 
  Country: None (occurrence: None)
  Receive Date: 20070426
  Receipt Date: 20070417
  Transmission Date: 20071010
  Serious: Yes (Disabling)
  Sender: FDA-Public Use
  Company Number: DK-PFIZER INC-2007003438

PATIENT
  Age: 47 Year
  Sex: Female

DRUGS (3)
  1. PREGABALIN [Suspect]
     Indication: NEURALGIA
     Route: 048
     Dates: start: 20060518, end: 20070105
  2. PAMOL [Concomitant]
  3. DOLOL [Concomitant]

REACTIONS (17)
  - AGITATION [None]
  - ASTHENIA [None]
  - CONSTIPATION [None]
  - DISTURBANCE IN ATTENTION [None]
  - DIZZINESS [None]
  - DRY EYE [None]
  - DRY MOUTH [None]
  - DYSPNOEA [None]
  - INSOMNIA [None]
  - MEMORY IMPAIRMENT [None]
  - MOOD ALTERED [None]
  - MUSCULAR WEAKNESS [None]
  - OEDEMA PERIPHERAL [None]
  - PALPITATIONS [None]
  - SLEEP DISORDER [None]
  - SOMNOLENCE [None]
  - SPEECH DISORDER [None]
